FAERS Safety Report 17767365 (Version 3)
Quarter: 2020Q2

REPORT INFORMATION
  Report Type: Spontaneous
  Country: US (occurrence: US)
  Receive Date: 20200511
  Receipt Date: 20200617
  Transmission Date: 20200714
  Serious: Yes (Hospitalization)
  Sender: FDA-Public Use
  Company Number: US-CELGENEUS-USA-20200501250

PATIENT
  Age: 48 Year
  Sex: Male

DRUGS (2)
  1. ABRAXANE [Suspect]
     Active Substance: PACLITAXEL
     Dosage: 280 MILLIGRAM
     Route: 041
     Dates: end: 20200106
  2. ABRAXANE [Suspect]
     Active Substance: PACLITAXEL
     Indication: ADENOCARCINOMA
     Dosage: 125 MILLIGRAM/SQ. METER
     Route: 041
     Dates: start: 20190902

REACTIONS (12)
  - Febrile neutropenia [Recovered/Resolved]
  - Decreased appetite [Unknown]
  - Malaise [Unknown]
  - Vomiting [Unknown]
  - Mouth ulceration [Unknown]
  - Hyperbilirubinaemia [Unknown]
  - Staphylococcal infection [Unknown]
  - Adenocarcinoma [Unknown]
  - Peripheral swelling [Unknown]
  - Oral candidiasis [Unknown]
  - Ascites [Unknown]
  - Oedema [Unknown]

NARRATIVE: CASE EVENT DATE: 202001
